FAERS Safety Report 20638696 (Version 1)
Quarter: 2022Q1

REPORT INFORMATION
  Report Type: Report from Study
  Country: VN (occurrence: None)
  Receive Date: 20220325
  Receipt Date: 20220325
  Transmission Date: 20220423
  Serious: Yes (Other)
  Sender: FDA-Public Use
  Company Number: 2022A119680

PATIENT
  Age: 20465 Day
  Sex: Male

DRUGS (19)
  1. INVESTIGATIONAL PRODUCT [Suspect]
     Active Substance: INVESTIGATIONAL PRODUCT
     Indication: Bladder cancer
     Route: 065
  2. DURVALUMAB [Suspect]
     Active Substance: DURVALUMAB
     Indication: Bladder cancer
     Dosage: 1500.0 MG
     Route: 042
     Dates: start: 20201118, end: 20201118
  3. DURVALUMAB [Suspect]
     Active Substance: DURVALUMAB
     Indication: Bladder cancer
     Dosage: 1500.0 MG
     Route: 042
     Dates: start: 20201209, end: 20201209
  4. DURVALUMAB [Suspect]
     Active Substance: DURVALUMAB
     Indication: Bladder cancer
     Dosage: 1500.0 MG
     Route: 042
     Dates: start: 20201230, end: 20201230
  5. DURVALUMAB [Suspect]
     Active Substance: DURVALUMAB
     Indication: Bladder cancer
     Dosage: 1500.0 MG
     Route: 042
     Dates: start: 20210120, end: 20210120
  6. DURVALUMAB [Suspect]
     Active Substance: DURVALUMAB
     Indication: Bladder cancer
     Dosage: 1500.0 MG
     Route: 042
     Dates: start: 20211215, end: 20211215
  7. DURVALUMAB [Suspect]
     Active Substance: DURVALUMAB
     Indication: Bladder cancer
     Dosage: 1500.0 MG
     Route: 042
     Dates: start: 20220113, end: 20220113
  8. GEMCITABINE [Suspect]
     Active Substance: GEMCITABINE
     Indication: Bladder cancer
     Dosage: 1500.0 MG
     Route: 065
     Dates: start: 20201118, end: 20201118
  9. GEMCITABINE [Suspect]
     Active Substance: GEMCITABINE
     Indication: Bladder cancer
     Dosage: 1500.0 MG
     Dates: start: 20201125, end: 20201125
  10. GEMCITABINE [Suspect]
     Active Substance: GEMCITABINE
     Indication: Bladder cancer
     Dosage: 1500.0 MG
     Dates: start: 20201209, end: 20201209
  11. GEMCITABINE [Suspect]
     Active Substance: GEMCITABINE
     Indication: Bladder cancer
     Dosage: 1500.0 MG
     Dates: start: 20201216, end: 20201216
  12. GEMCITABINE [Suspect]
     Active Substance: GEMCITABINE
     Indication: Bladder cancer
     Dosage: 1500.0 MG
     Dates: start: 20201230, end: 20201230
  13. GEMCITABINE [Suspect]
     Active Substance: GEMCITABINE
     Indication: Bladder cancer
     Dosage: 1500.0 MG
     Dates: start: 20210106, end: 20210106
  14. GEMCITABINE [Suspect]
     Active Substance: GEMCITABINE
     Indication: Bladder cancer
     Dosage: 1500.0 MG
     Dates: start: 20210120, end: 20210120
  15. GEMCITABINE [Suspect]
     Active Substance: GEMCITABINE
     Indication: Bladder cancer
     Dosage: 1500.0 MG
     Dates: start: 20210127, end: 20210127
  16. CISPLATIN [Suspect]
     Active Substance: CISPLATIN
     Indication: Bladder cancer
     Dates: start: 20201118, end: 20201118
  17. CISPLATIN [Suspect]
     Active Substance: CISPLATIN
     Indication: Bladder cancer
     Dates: start: 20201209, end: 20201209
  18. CISPLATIN [Suspect]
     Active Substance: CISPLATIN
     Indication: Bladder cancer
     Dates: start: 20201230, end: 20201230
  19. CISPLATIN [Suspect]
     Active Substance: CISPLATIN
     Indication: Bladder cancer
     Dates: start: 20210120, end: 20210120

REACTIONS (1)
  - Drug-induced liver injury [Recovering/Resolving]

NARRATIVE: CASE EVENT DATE: 20220215
